FAERS Safety Report 18956052 (Version 1)
Quarter: 2021Q1

REPORT INFORMATION
  Report Type: Spontaneous
  Country: IT (occurrence: IT)
  Receive Date: 20210301
  Receipt Date: 20210301
  Transmission Date: 20210420
  Serious: Yes (Other)
  Sender: FDA-Public Use
  Company Number: IT-ELI_LILLY_AND_COMPANY-IT200606002808

PATIENT
  Age: 42 Year
  Sex: Male

DRUGS (4)
  1. TESTOSTERONE. [Concomitant]
     Active Substance: TESTOSTERONE
     Dosage: 100 MG, MONTHLY (1/M)
     Dates: start: 1996
  2. SOMATROPIN. [Suspect]
     Active Substance: SOMATROPIN
     Dosage: 0.15 MG, DAILY (1/D)
     Dates: start: 200409
  3. LEVOTHYROXINE. [Concomitant]
     Active Substance: LEVOTHYROXINE
     Dosage: 50 MG, DAILY (1/D)
     Dates: start: 1996
  4. SOMATROPIN. [Suspect]
     Active Substance: SOMATROPIN
     Indication: GROWTH HORMONE DEFICIENCY
     Dosage: 0.3 MG, DAILY (1/D)
     Dates: start: 1996, end: 200310

REACTIONS (3)
  - Blood bilirubin increased [Unknown]
  - Idiopathic intracranial hypertension [Recovered/Resolved]
  - Hypochromic anaemia [Unknown]

NARRATIVE: CASE EVENT DATE: 200310
